FAERS Safety Report 9458926 (Version 1)
Quarter: 2013Q3

REPORT INFORMATION
  Report Type: Report from Study
  Country: LB (occurrence: LB)
  Receive Date: 20130814
  Receipt Date: 20130814
  Transmission Date: 20140515
  Serious: Yes (Hospitalization)
  Sender: FDA-Public Use
  Company Number: LB-SANOFI-AVENTIS-2013SA079906

PATIENT
  Age: 57 Year
  Sex: Male

DRUGS (7)
  1. LANTUS SOLOSTAR [Suspect]
     Indication: DIABETES MELLITUS
     Dosage: DOSE:40 UNIT(S)
     Route: 058
     Dates: start: 2012
  2. GLUCOPHAGE [Concomitant]
     Indication: DIABETES MELLITUS
     Route: 048
  3. PLAVIX [Concomitant]
  4. CORVASAL [Concomitant]
     Route: 048
  5. CONCOR [Concomitant]
     Route: 048
  6. LOSANET [Concomitant]
  7. ASPICOT [Concomitant]
     Route: 048

REACTIONS (1)
  - Arteriogram coronary [Recovered/Resolved]
